FAERS Safety Report 6604043-9 (Version None)
Quarter: 2010Q1

REPORT INFORMATION
  Report Type: 
  Country: None (occurrence: None)
  Receive Date: 20100226
  Receipt Date: 20090423
  Transmission Date: 20100710
  Serious: No
  Sender: FDA-Public Use
  Company Number: A0780316A

PATIENT
  Age: 57 Year
  Sex: Female

DRUGS (4)
  1. LAMICTAL CD [Suspect]
     Indication: BIPOLAR DISORDER
     Dosage: 100MG PER DAY
     Route: 048
     Dates: start: 20081101
  2. PROZAC [Concomitant]
  3. KLONOPIN [Concomitant]
  4. LUNESTA [Concomitant]

REACTIONS (2)
  - ACNE [None]
  - RASH PUSTULAR [None]
